FAERS Safety Report 5057420-4 (Version None)
Quarter: 2006Q3

REPORT INFORMATION
  Report Type: 
  Country: None (occurrence: None)
  Receive Date: 20060721
  Receipt Date: 20050927
  Transmission Date: 20061208
  Serious: No
  Sender: FDA-Public Use
  Company Number: US-GLAXOSMITHKLINE-A0576065A

PATIENT
  Age: 71 Year
  Sex: Male

DRUGS (8)
  1. AVANDIA [Suspect]
     Dosage: 8MG PER DAY
     Route: 048
  2. METOPROLOL [Concomitant]
  3. NAMENDA [Concomitant]
  4. ASPIRIN [Concomitant]
  5. NYSTATIN [Concomitant]
  6. EYE DROPS [Concomitant]
     Indication: GLAUCOMA
     Route: 061
  7. ZOCOR [Concomitant]
  8. REMERON [Concomitant]

REACTIONS (1)
  - FATIGUE [None]
